FAERS Safety Report 10434999 (Version 3)
Quarter: 2014Q4

REPORT INFORMATION
  Report Type: Spontaneous
  Country: US (occurrence: US)
  Receive Date: 20140906
  Receipt Date: 20141008
  Transmission Date: 20150528
  Serious: Yes (Other)
  Sender: FDA-Public Use
  Company Number: US-009507513-1409USA001494

PATIENT
  Age: 22 Year
  Sex: Female
  Weight: 56.69 kg

DRUGS (1)
  1. RAGWITEK [Suspect]
     Active Substance: AMBROSIA ARTEMISIIFOLIA POLLEN
     Indication: SEASONAL ALLERGY
     Dosage: 1 TABLET, DOSAGE FORM: 12 AMB A 1-UNIT
     Route: 060
     Dates: start: 20140721, end: 20140727

REACTIONS (4)
  - Swollen tongue [Recovered/Resolved]
  - Mouth swelling [Recovered/Resolved]
  - Dyspnoea [Recovered/Resolved]
  - Pharyngeal oedema [Recovered/Resolved]

NARRATIVE: CASE EVENT DATE: 20140727
